FAERS Safety Report 5031234-3 (Version None)
Quarter: 2006Q2

REPORT INFORMATION
  Report Type: 
  Country: None (occurrence: None)
  Receive Date: 20060621
  Receipt Date: 20060508
  Transmission Date: 20061013
  Serious: No
  Sender: FDA-Public Use
  Company Number: US-GLAXOSMITHKLINE-A0604694A

PATIENT
  Sex: Male

DRUGS (1)
  1. AVANDARYL [Suspect]
     Route: 048

REACTIONS (1)
  - TACHYCARDIA [None]
